FAERS Safety Report 8435529-2 (Version None)
Quarter: 2012Q2

REPORT INFORMATION
  Report Type: 
  Country: None (occurrence: None)
  Receive Date: 20120614
  Receipt Date: 20120611
  Transmission Date: 20120825
  Serious: Yes (Life-Threatening, Hospitalization)
  Sender: FDA-Public Use
  Company Number: US-AMGEN-USASP2011036356

PATIENT
  Age: 77 Year
  Sex: Female

DRUGS (6)
  1. ENBREL [Suspect]
     Dosage: UNK
     Dates: start: 20040901, end: 20110328
  2. PLAVIX [Concomitant]
     Dosage: 75 MG, QD
  3. PREDNISONE TAB [Concomitant]
     Dosage: 5 MG, QD
  4. ENBREL [Suspect]
     Indication: RHEUMATOID ARTHRITIS
     Dosage: UNK
     Dates: start: 20060101
  5. PROTONIX [Concomitant]
     Dosage: 40 MG, QD
  6. AMLODIPINE [Concomitant]
     Dosage: 5 MG, QD

REACTIONS (8)
  - PNEUMONIA [None]
  - IMMUNOSUPPRESSION [None]
  - PYREXIA [None]
  - SINUSITIS [None]
  - BRONCHITIS [None]
  - ACUTE RESPIRATORY FAILURE [None]
  - PRODUCTIVE COUGH [None]
  - PAIN [None]
